FAERS Safety Report 9333955 (Version 1)
Quarter: 2013Q2

REPORT INFORMATION
  Report Type: Spontaneous
  Country: US (occurrence: US)
  Receive Date: 20130606
  Receipt Date: 20130606
  Transmission Date: 20140414
  Serious: No
  Sender: FDA-Public Use
  Company Number: US-AMGEN-USASP2013014118

PATIENT
  Age: 69 Year
  Sex: Female
  Weight: 62.59 kg

DRUGS (8)
  1. PROLIA [Suspect]
     Indication: OSTEOPOROSIS POSTMENOPAUSAL
     Dosage: 1DF, Q6MO
     Route: 058
     Dates: start: 20120817, end: 20120817
  2. ASPIRIN [Concomitant]
     Dosage: 81 MG, QD
     Route: 048
  3. BONVIVA [Concomitant]
     Dosage: 150 MG, QMO
     Route: 048
  4. HYDROCHLOROTHIAZIDE [Concomitant]
     Dosage: 12.5 MG, QD
     Route: 048
  5. LISINOPRIL [Concomitant]
     Dosage: 10 MG, QD
     Route: 048
  6. LOVAZA [Concomitant]
     Dosage: 1000 MG, BID
     Route: 048
  7. SIMVASTATIN [Concomitant]
     Dosage: 40 MG, QD
     Route: 048
  8. VITAMIN D3 [Concomitant]
     Dosage: 5000 UNIT, QD

REACTIONS (3)
  - Feeling abnormal [Recovered/Resolved]
  - Insomnia [Recovering/Resolving]
  - Drug hypersensitivity [Recovered/Resolved]
